APPROVED DRUG PRODUCT: CHLORAPREP ONE-STEP
Active Ingredient: CHLORHEXIDINE GLUCONATE; ISOPROPYL ALCOHOL
Strength: 2%;70% (26ML)
Dosage Form/Route: SPONGE;TOPICAL
Application: N020832 | Product #006
Applicant: BECTON DICKINSON AND CO
Approved: Nov 21, 2006 | RLD: Yes | RS: Yes | Type: OTC